FAERS Safety Report 8525214-0 (Version None)
Quarter: 2012Q3

REPORT INFORMATION
  Report Type: 
  Country: None (occurrence: None)
  Receive Date: 20120720
  Receipt Date: 20120716
  Transmission Date: 20120928
  Serious: Yes (Other)
  Sender: FDA-Public Use
  Company Number: PHEH2012US013967

PATIENT
  Sex: Male

DRUGS (3)
  1. LOPRESSOR [Suspect]
     Dosage: 50 MG, BID
  2. ASPIRIN [Concomitant]
     Dosage: 81 MG, UNK
  3. CUMIDEN [Concomitant]
     Dosage: 2.5-3 MG, QD

REACTIONS (1)
  - MYOCARDIAL INFARCTION [None]
